FAERS Safety Report 8637631 (Version 3)
Quarter: 2012Q4

REPORT INFORMATION
  Report Type: 
  Country: FR (occurrence: FR)
  Receive Date: 20120627
  Receipt Date: 20120906
  Transmission Date: 20130627
  Serious: Yes (Death, Hospitalization, Other)
  Sender: FDA-Public Use
  Company Number: PHHY2012FR054156

PATIENT
  Age: 72 None
  Sex: Male

DRUGS (5)
  1. GLIVEC [Suspect]
     Indication: CHRONIC MYELOID LEUKAEMIA
     Dosage: 400 mg, daily
     Route: 048
     Dates: start: 20021107, end: 20111220
  2. ACEBUTOLOL [Concomitant]
     Dosage: UNK UKN, UNK
  3. LASILIX [Concomitant]
     Dosage: UNK UKN, UNK
  4. FLECAINE [Concomitant]
     Dosage: UNK UKN, UNK
  5. KARDEGIC [Concomitant]
     Dosage: UNK UKN, UNK

REACTIONS (5)
  - Septic shock [Fatal]
  - Pancreatic carcinoma [Unknown]
  - Second primary malignancy [Unknown]
  - Pain [Unknown]
  - Metastases to peritoneum [None]
